FAERS Safety Report 5050554-X (Version None)
Quarter: 2006Q3

REPORT INFORMATION
  Report Type: 
  Country: None (occurrence: None)
  Receive Date: 20060713
  Receipt Date: 20060707
  Transmission Date: 20061208
  Serious: Yes (Life-Threatening, Hospitalization, Other)
  Sender: FDA-Public Use
  Company Number: BR-GLAXOSMITHKLINE-A0611994A

PATIENT
  Age: 24 Year
  Sex: Male

DRUGS (1)
  1. ZYBAN [Suspect]
     Dosage: 6TAB SINGLE DOSE
     Route: 048
     Dates: start: 20060707, end: 20060707

REACTIONS (3)
  - CONVULSION [None]
  - DRUG TOXICITY [None]
  - SUICIDE ATTEMPT [None]
